FAERS Safety Report 15927019 (Version 1)
Quarter: 2019Q1

REPORT INFORMATION
  Report Type: Spontaneous
  Country: CN (occurrence: CN)
  Receive Date: 20190206
  Receipt Date: 20190206
  Transmission Date: 20190417
  Serious: Yes (Other)
  Sender: FDA-Public Use
  Company Number: CN-PFIZER INC-2019049191

PATIENT
  Age: 66 Year
  Sex: Male

DRUGS (2)
  1. SODIUM CHLORIDE. [Concomitant]
     Active Substance: SODIUM CHLORIDE
     Indication: RESPIRATORY FAILURE
     Dosage: 100 ML, UNK
     Dates: start: 20190126, end: 20190126
  2. SOLU-MEDROL [Suspect]
     Active Substance: METHYLPREDNISOLONE SODIUM SUCCINATE
     Indication: RESPIRATORY FAILURE
     Dosage: 80 MG, 1X/DAY
     Route: 041
     Dates: start: 20190126, end: 20190126

REACTIONS (4)
  - Tachypnoea [Recovering/Resolving]
  - Blood pressure increased [Recovering/Resolving]
  - Flushing [Recovering/Resolving]
  - Hyperhidrosis [Recovering/Resolving]

NARRATIVE: CASE EVENT DATE: 20190126
